FAERS Safety Report 6389814-9 (Version None)
Quarter: 2009Q4

REPORT INFORMATION
  Report Type: 
  Country: None (occurrence: None)
  Receive Date: 20091002
  Receipt Date: 20091002
  Transmission Date: 20100525
  Serious: Yes (Hospitalization)
  Sender: FDA-Public Use
  Company Number: None

PATIENT
  Age: 46 Year
  Sex: Female
  Weight: 73 kg

DRUGS (9)
  1. TOPIRAMATE [Suspect]
     Indication: BIPOLAR DISORDER
     Dosage: 200MG DAILY ORAL
     Route: 048
  2. ALBUTEROL [Concomitant]
  3. ALENDRONATE SODIUM [Concomitant]
  4. CLONAZEPAM [Concomitant]
  5. VITAMIN D2 [Concomitant]
  6. HALOPERIDOL [Concomitant]
  7. LITHIUM [Concomitant]
  8. QUETIAPINE [Concomitant]
  9. ZOLPIDEM [Concomitant]

REACTIONS (4)
  - DERMATITIS BULLOUS [None]
  - RASH PRURITIC [None]
  - SKIN DISCOLOURATION [None]
  - VASCULITIS [None]
